FAERS Safety Report 7737542-7 (Version None)
Quarter: 2011Q3

REPORT INFORMATION
  Report Type: 
  Country: None (occurrence: None)
  Receive Date: 20110902
  Receipt Date: 20110823
  Transmission Date: 20111222
  Serious: Yes (Other)
  Sender: FDA-Public Use
  Company Number: EU-2011-10156

PATIENT
  Age: 62 Year
  Sex: Male

DRUGS (5)
  1. BIOPLAK (ACETYLSALICYLIC ACID) [Concomitant]
  2. PLETAL [Suspect]
     Indication: INTERMITTENT CLAUDICATION
     Dosage: 100 MG MILLIGRAM(S), ORAL; 200 MG MILLIGRAM(S), ORAL
     Route: 048
     Dates: start: 20110428, end: 20110430
  3. METFORMIN HCL [Concomitant]
  4. CLORAZEPATE DIPOTASSIUM [Concomitant]
  5. ATORVASTATIN [Concomitant]

REACTIONS (3)
  - PALPITATIONS [None]
  - TACHYCARDIA [None]
  - NERVOUSNESS [None]
